FAERS Safety Report 7673014-6 (Version None)
Quarter: 2011Q3

REPORT INFORMATION
  Report Type: 
  Country: None (occurrence: None)
  Receive Date: 20110809
  Receipt Date: 20110721
  Transmission Date: 20111222
  Serious: Yes (Hospitalization)
  Sender: FDA-Public Use
  Company Number: BR-ASTRAZENECA-2011SE44090

PATIENT
  Age: 61 Year
  Sex: Female
  Weight: 65 kg

DRUGS (5)
  1. ATENOLOL [Suspect]
     Indication: HYPERTENSION
     Route: 048
     Dates: start: 20060101, end: 20100101
  2. METOPROLOL SUCCINATE [Suspect]
     Route: 048
  3. METOPROLOL SUCCINATE [Suspect]
     Route: 048
     Dates: start: 20100101
  4. METOPROLOL SUCCINATE [Suspect]
     Route: 048
  5. CALCIUM CARBONATE [Concomitant]
     Indication: OSTEOPENIA
     Route: 048

REACTIONS (6)
  - HYPOTENSION [None]
  - OFF LABEL USE [None]
  - DRUG INEFFECTIVE [None]
  - SOMNOLENCE [None]
  - BLOOD PRESSURE INCREASED [None]
  - ASTHENIA [None]
